FAERS Safety Report 17989442 (Version 1)
Quarter: 2020Q3

REPORT INFORMATION
  Report Type: Spontaneous
  Country: GB (occurrence: GB)
  Receive Date: 20200707
  Receipt Date: 20200707
  Transmission Date: 20201103
  Serious: Yes (Other)
  Sender: FDA-Public Use
  Company Number: GB-PFIZER INC-2020255338

PATIENT
  Age: 53 Year
  Sex: Female

DRUGS (7)
  1. TERBINAFINE. [Suspect]
     Active Substance: TERBINAFINE
     Dosage: UNK
  2. LAMISIL [Suspect]
     Active Substance: TERBINAFINE HYDROCHLORIDE
     Indication: DERMATITIS
     Dosage: 250 MG, (REPORTED ALSO AS UNSURE OF DOSE)
     Route: 048
     Dates: start: 20200108, end: 20200127
  3. BUMETANIDE. [Concomitant]
     Active Substance: BUMETANIDE
     Indication: FLUID OVERLOAD
     Dosage: UNK
     Route: 048
     Dates: start: 2007
  4. BISOPROLOL [Suspect]
     Active Substance: BISOPROLOL
     Indication: PROPHYLAXIS
     Dosage: UNK, UNSURE OF DOSE, STARTED POST MI
     Route: 048
     Dates: start: 20070101
  5. SIMVASTATIN. [Suspect]
     Active Substance: SIMVASTATIN
     Dosage: 40 MG (REPORTED ALSO AS UNSURE OF DOSE)
     Route: 048
     Dates: start: 20070101
  6. ASPIRIN [ACETYLSALICYLIC ACID] [Concomitant]
     Active Substance: ASPIRIN
     Indication: PROPHYLAXIS
     Dosage: 75 MG STARTED POST MI
     Route: 048
     Dates: start: 20070101
  7. AMLODIPINE BESILATE [Suspect]
     Active Substance: AMLODIPINE BESYLATE
     Indication: HYPERTENSION
     Dosage: UNK, UNSURE OF DOSE. NIL EXACT INFO ON WHEN STARTED (APPROX 2007) PATIENT STILL TAKING
     Route: 048
     Dates: start: 2007

REACTIONS (2)
  - Subacute cutaneous lupus erythematosus [Recovering/Resolving]
  - Drug eruption [Unknown]

NARRATIVE: CASE EVENT DATE: 20200101
